FAERS Safety Report 18191833 (Version 1)
Quarter: 2020Q3

REPORT INFORMATION
  Report Type: Spontaneous
  Country: US (occurrence: US)
  Receive Date: 20200824
  Receipt Date: 20200824
  Transmission Date: 20201103
  Serious: Yes (Hospitalization)
  Sender: FDA-Public Use
  Company Number: None

PATIENT
  Age: 47 Year
  Sex: Female

DRUGS (3)
  1. BARACLUDE [Suspect]
     Active Substance: ENTECAVIR
     Indication: CHRONIC HEPATITIS B
     Route: 048
     Dates: start: 20180213
  2. XARELTO [Concomitant]
     Active Substance: RIVAROXABAN
  3. HYDROXYCHLOR [Concomitant]
     Active Substance: HYDROXYCHLOROQUINE

REACTIONS (2)
  - Urinary tract infection [None]
  - Kidney infection [None]

NARRATIVE: CASE EVENT DATE: 20200813
